FAERS Safety Report 6178614-0 (Version None)
Quarter: 2009Q2

REPORT INFORMATION
  Report Type: 
  Country: None (occurrence: None)
  Receive Date: 20090430
  Receipt Date: 20090423
  Transmission Date: 20091009
  Serious: Yes (Other)
  Sender: FDA-Public Use
  Company Number: 2009JP002481

PATIENT
  Age: 3 Year
  Sex: Female

DRUGS (1)
  1. PROGRAF [Suspect]
     Indication: LIVER TRANSPLANT

REACTIONS (3)
  - EPSTEIN-BARR VIRUS INFECTION [None]
  - ERYTHEMA NODOSUM [None]
  - VASCULITIS [None]
